FAERS Safety Report 9555418 (Version 1)
Quarter: 2013Q3

REPORT INFORMATION
  Report Type: Spontaneous
  Country: HR (occurrence: HR)
  Receive Date: 20130926
  Receipt Date: 20130926
  Transmission Date: 20140515
  Serious: Yes (Other)
  Sender: FDA-Public Use
  Company Number: HR-JNJFOC-20130911300

PATIENT
  Age: 42 Year
  Sex: Female
  Weight: 55 kg

DRUGS (1)
  1. CILEST [Suspect]
     Indication: HORMONE THERAPY
     Dosage: LAST PERIOD 6 MONTHS
     Route: 048
     Dates: start: 201201, end: 20130716

REACTIONS (7)
  - Mood altered [Unknown]
  - Anxiety [Unknown]
  - Agitation [Unknown]
  - Fatigue [Unknown]
  - Fatigue [Unknown]
  - Insomnia [Unknown]
  - Decreased appetite [Unknown]
